FAERS Safety Report 14617637 (Version 2)
Quarter: 2018Q1

REPORT INFORMATION
  Report Type: Report from Study
  Country: CN (occurrence: CN)
  Receive Date: 20180309
  Receipt Date: 20180323
  Transmission Date: 20180509
  Serious: Yes (Death, Other)
  Sender: FDA-Public Use
  Company Number: CN-INCYTE CORPORATION-2018IN001904

PATIENT

DRUGS (1)
  1. JAKAVI [Suspect]
     Active Substance: RUXOLITINIB
     Indication: MYELOFIBROSIS
     Dosage: 5 MG, BID
     Route: 048
     Dates: start: 20171013, end: 20180104

REACTIONS (7)
  - Pulmonary calcification [Unknown]
  - Pyrexia [Unknown]
  - Cough [Unknown]
  - Respiratory failure [Fatal]
  - Productive cough [Unknown]
  - Haemoglobin decreased [Unknown]
  - Pneumonia [Fatal]

NARRATIVE: CASE EVENT DATE: 20180104
